FAERS Safety Report 6268579-5 (Version None)
Quarter: 2009Q3

REPORT INFORMATION
  Report Type: 
  Country: None (occurrence: None)
  Receive Date: 20090715
  Receipt Date: 20090406
  Transmission Date: 20100115
  Serious: No
  Sender: FDA-Public Use
  Company Number: US-BAYER-200917609NA

PATIENT
  Age: 32 Year
  Sex: Female
  Weight: 64 kg

DRUGS (4)
  1. YAZ [Suspect]
     Indication: ACNE
     Route: 048
     Dates: end: 20080701
  2. YAZ [Suspect]
     Route: 048
     Dates: start: 20080901
  3. PAXIL [Concomitant]
     Indication: DEPRESSION
  4. DOXYCYCLINE [Concomitant]
     Indication: ACNE
     Dosage: UNIT DOSE: 50 MG

REACTIONS (3)
  - ACNE [None]
  - ALOPECIA [None]
  - WEIGHT DECREASED [None]
